FAERS Safety Report 10598379 (Version 1)
Quarter: 2014Q4

REPORT INFORMATION
  Report Type: Other
  Country: NO (occurrence: NO)
  Receive Date: 20141121
  Receipt Date: 20141121
  Transmission Date: 20150529
  Serious: Yes (Disabling)
  Sender: FDA-Public Use
  Company Number: NO-MYLANLABS-2014M1010518

PATIENT

DRUGS (8)
  1. ATENOLOL. [Suspect]
     Active Substance: ATENOLOL
     Dosage: INITIALLY 50 X 1, LATER 100 MG/DAY, THEN 150-200 MG/DAY.
     Route: 048
     Dates: start: 201208
  2. TAMBOCOR [Suspect]
     Active Substance: FLECAINIDE ACETATE
     Dosage: 200 MG + 100 MG
     Dates: end: 20120820
  3. MAREVAN [Concomitant]
     Active Substance: WARFARIN SODIUM
     Dosage: UNK
  4. DIGITOXIN [Concomitant]
     Active Substance: DIGITOXIN
     Dosage: UNK
  5. ISOPTIN [Concomitant]
     Active Substance: VERAPAMIL HYDROCHLORIDE
     Dosage: UNK
  6. SOBRIL [Concomitant]
     Active Substance: OXAZEPAM
     Indication: TIC
     Dosage: HE HAS UP TO 15 MG OXAZEPAM X 3-5 PER DAY,  BUT ARE ADVICED TO REDUCE THE DOSE
  7. CORDARONE [Suspect]
     Active Substance: AMIODARONE HYDROCHLORIDE
     Indication: ATRIAL FIBRILLATION
     Dosage: UNKNOWN DOSE
     Dates: start: 200411, end: 2005
  8. ALBYL-E [Concomitant]
     Active Substance: ASPIRIN\MAGNESIUM OXIDE
     Dosage: 75 MG, QD

REACTIONS (2)
  - Tic [Recovered/Resolved]
  - Tic [Recovering/Resolving]

NARRATIVE: CASE EVENT DATE: 200501
